FAERS Safety Report 5127384-3 (Version None)
Quarter: 2006Q4

REPORT INFORMATION
  Report Type: 
  Country: None (occurrence: None)
  Receive Date: 20061012
  Receipt Date: 20061012
  Transmission Date: 20070319
  Serious: Yes (Life-Threatening)
  Sender: FDA-Public Use
  Company Number: None

PATIENT
  Age: 64 Year
  Sex: Male
  Weight: 98.18 kg

DRUGS (1)
  1. VACCINE BCG [Suspect]
     Indication: RENAL CELL CARCINOMA STAGE UNSPECIFIED
     Dosage: X 2
     Dates: start: 20060506, end: 20060506

REACTIONS (5)
  - CARDIOGENIC SHOCK [None]
  - HEPATIC FAILURE [None]
  - HYPOTENSION [None]
  - RENAL FAILURE [None]
  - RESPIRATORY FAILURE [None]
